FAERS Safety Report 9856813 (Version 3)
Quarter: 2014Q3

REPORT INFORMATION
  Report Type: Spontaneous
  Country: SK (occurrence: SK)
  Receive Date: 20140130
  Receipt Date: 20140723
  Transmission Date: 20150326
  Serious: Yes (Death, Life-Threatening, Hospitalization)
  Sender: FDA-Public Use
  Company Number: SK-B.I. PHARMACEUTICALS,INC./RIDGEFIELD-2014-BI-03881SK

PATIENT
  Age: 78 Year
  Sex: Female

DRUGS (7)
  1. CAVINTON [Concomitant]
     Active Substance: VINPOCETINE
     Indication: CEREBROVASCULAR ACCIDENT
     Route: 065
  2. ATORIS [Concomitant]
     Active Substance: ATORVASTATIN CALCIUM
     Indication: HYPERCHOLESTEROLAEMIA
     Dosage: 20 MG
     Route: 048
  3. PRADAXA [Suspect]
     Active Substance: DABIGATRAN ETEXILATE MESYLATE
     Indication: CEREBROVASCULAR ACCIDENT PROPHYLAXIS
  4. PRADAXA [Suspect]
     Active Substance: DABIGATRAN ETEXILATE MESYLATE
     Indication: ATRIAL FIBRILLATION
     Dosage: 220 MG
     Route: 048
     Dates: start: 20120912, end: 20131229
  5. PERINDOPRIL+INDAPAMIDE [Concomitant]
     Indication: ESSENTIAL HYPERTENSION
     Route: 048
  6. CORONAL [Concomitant]
     Indication: MYOCARDIAL ISCHAEMIA
     Dosage: 10 MG
     Route: 048
  7. MILURIT [Concomitant]
     Active Substance: ALLOPURINOL
     Dosage: 150 MG
     Route: 048

REACTIONS (12)
  - Haematochezia [Fatal]
  - Hypocoagulable state [Unknown]
  - Intestinal haemorrhage [Fatal]
  - Haematochezia [Fatal]
  - Anaemia [Unknown]
  - Chest pain [Unknown]
  - Cardiopulmonary failure [Fatal]
  - Shock haemorrhagic [Fatal]
  - Renal failure [Unknown]
  - Haematuria [Unknown]
  - Malaise [Unknown]
  - Dizziness [Unknown]

NARRATIVE: CASE EVENT DATE: 20131229
